FAERS Safety Report 25231293 (Version 1)
Quarter: 2025Q2

REPORT INFORMATION
  Report Type: Spontaneous
  Country: US (occurrence: None)
  Receive Date: 20250423
  Receipt Date: 20250423
  Transmission Date: 20250716
  Serious: Yes (Other)
  Sender: FDA-CTU
  Company Number: None

PATIENT
  Age: 47 Year
  Sex: Female

DRUGS (7)
  1. KESIMPTA [Suspect]
     Active Substance: OFATUMUMAB
     Indication: Multiple sclerosis
     Route: 058
     Dates: start: 20250125
  2. AMLODIPINE [Concomitant]
     Active Substance: AMLODIPINE BESYLATE
  3. CEPHALEXIN [Concomitant]
     Active Substance: CEPHALEXIN
  4. LOSARTAN POTASSIUM [Concomitant]
     Active Substance: LOSARTAN POTASSIUM
  5. MODAFINIL [Concomitant]
     Active Substance: MODAFINIL
  6. NEXPLANON [Concomitant]
     Active Substance: ETONOGESTREL
  7. QELBREE [Concomitant]
     Active Substance: VILOXAZINE HYDROCHLORIDE

REACTIONS (4)
  - Hypertension [None]
  - Pain in extremity [None]
  - Chest pain [None]
  - Blood potassium decreased [None]

NARRATIVE: CASE EVENT DATE: 20250406
